FAERS Safety Report 5289470-7 (Version None)
Quarter: 2007Q2

REPORT INFORMATION
  Report Type: 
  Country: None (occurrence: None)
  Receive Date: 20070402
  Receipt Date: 20070326
  Transmission Date: 20071010
  Serious: Yes (Hospitalization, Other)
  Sender: FDA-Public Use
  Company Number: 163-21880-06111283

PATIENT
  Age: 77 Year
  Sex: Female

DRUGS (19)
  1. REVLIMID [Suspect]
     Indication: MYELODYSPLASTIC SYNDROME
     Dosage: SEE IMAGE, ORAL
     Route: 048
     Dates: start: 20060918, end: 20060921
  2. REVLIMID [Suspect]
     Indication: MYELODYSPLASTIC SYNDROME
     Dosage: SEE IMAGE, ORAL
     Route: 048
     Dates: start: 20061002, end: 20061102
  3. REVLIMID [Suspect]
     Indication: MYELODYSPLASTIC SYNDROME
     Dosage: SEE IMAGE, ORAL
     Route: 048
     Dates: start: 20061102, end: 20061116
  4. DECITABINE (DECITABINE) [Concomitant]
  5. BENZONATE (BENZONATATE) [Concomitant]
  6. CALCIUM CARBONATE (CALCIUM CARBONATE) [Concomitant]
  7. CENTRUM SILVER (CENTRUM SILVER) (TABLETS) [Concomitant]
  8. LUTEIN (XANTOFYL) (CAPSULES) [Concomitant]
  9. PROCRIT [Concomitant]
  10. VITAMIN B12 [Concomitant]
  11. ASPIRIN [Concomitant]
  12. OCUVITE (OCUVITE) [Concomitant]
  13. CALCIUM (CALCIUM) [Concomitant]
  14. COMPAZINE [Concomitant]
  15. SYNTHROID [Concomitant]
  16. NEULASTA [Concomitant]
  17. OCUVITE VITAMIN (OCUVITE) (TABLETS) [Concomitant]
  18. TYLENOL [Concomitant]
  19. BENADRYL (BENADRYL ^PARKE DAVIS^ /FRA/) [Concomitant]

REACTIONS (7)
  - ASTHENIA [None]
  - CONDITION AGGRAVATED [None]
  - HAEMOGLOBIN DECREASED [None]
  - NEUROPATHY [None]
  - PULMONARY EMBOLISM [None]
  - RASH MACULO-PAPULAR [None]
  - THROMBOCYTHAEMIA [None]
